FAERS Safety Report 21824349 (Version 1)
Quarter: 2023Q1

REPORT INFORMATION
  Report Type: Spontaneous
  Country: US (occurrence: None)
  Receive Date: 20230105
  Receipt Date: 20230105
  Transmission Date: 20230417
  Serious: Yes (Other)
  Sender: FDA-Public Use
  Company Number: None

PATIENT
  Sex: Female

DRUGS (1)
  1. BENLYSTA [Suspect]
     Active Substance: BELIMUMAB
     Indication: Systemic lupus erythematosus
     Dosage: 200 MG/ML SUBCUTANEOUS??INJECT 200 MG UNDER THE SKIN (SUBCUTANEOUS INJECTION) EVERY 7 DAYS?
     Route: 058
     Dates: start: 20210917

REACTIONS (2)
  - Therapy interrupted [None]
  - Surgery [None]
